FAERS Safety Report 10760805 (Version 2)
Quarter: 2015Q1

REPORT INFORMATION
  Report Type: Spontaneous
  Country: JP (occurrence: None)
  Receive Date: 20150202
  Receipt Date: 20150209
  Transmission Date: 20150721
  Serious: Yes (Life-Threatening)
  Sender: FDA-Public Use
  Company Number: 2015BCR00016

PATIENT
  Age: 74 Year
  Sex: Male

DRUGS (12)
  1. MEDICON DEXTROMETHORPHAN HYDROBROMIDE HYDRATE) [Concomitant]
  2. JUVELA N (TOCOPOHEROL NICOTINATE) [Concomitant]
  3. RAPIACTA [Suspect]
     Active Substance: PERAMIVIR
     Indication: INFLUENZA
     Route: 042
     Dates: start: 20150110, end: 20150110
  4. NEXIUM (ESOMEPRAZOLE MAGNESIUM HYDRATE) [Concomitant]
  5. MUCODYNE (CARBOCISTEINE) [Concomitant]
     Active Substance: CARBOCYSTEINE
  6. TRACLEER (BOSENTAN HYDRATE) [Concomitant]
  7. AVELOX (MOXIFLOXACIN HYDROCHLORIDE) [Concomitant]
  8. ALFAROL [Concomitant]
     Active Substance: ALFACALCIDOL
  9. LENDORMIN (BROTIZALAM) [Concomitant]
  10. PURSENNID (SENNOSIDE) [Concomitant]
  11. PREDNISOLONE (PREDNISOLONE) [Concomitant]
     Active Substance: PREDNISOLONE
  12. DORNER (BERAPROST SODIUM) [Concomitant]

REACTIONS (1)
  - Cardio-respiratory arrest [None]

NARRATIVE: CASE EVENT DATE: 20150110
